FAERS Safety Report 4268102-0 (Version None)
Quarter: 2004Q1

REPORT INFORMATION
  Report Type: 
  Country: None (occurrence: None)
  Receive Date: 20040109
  Receipt Date: 20040109
  Transmission Date: 20041129
  Serious: Yes (Hospitalization)
  Sender: FDA-Public Use
  Company Number: None

PATIENT
  Age: 48 Year
  Sex: Female
  Weight: 61.8 kg

DRUGS (1)
  1. ACEON [Suspect]
     Indication: CARDIAC FAILURE CONGESTIVE
     Dosage: 2 MG DAILY ORAL
     Route: 048
     Dates: start: 20030201, end: 20030502

REACTIONS (6)
  - ANAPHYLACTIC SHOCK [None]
  - ANGIONEUROTIC OEDEMA [None]
  - BLISTER [None]
  - DIALYSIS [None]
  - HYPERKALAEMIA [None]
  - RENAL FAILURE ACUTE [None]
